FAERS Safety Report 9201844 (Version 1)
Quarter: 2013Q1

REPORT INFORMATION
  Report Type: Spontaneous
  Country: US (occurrence: None)
  Receive Date: 20130328
  Receipt Date: 20130328
  Transmission Date: 20140127
  Serious: Yes (Hospitalization)
  Sender: FDA-Public Use
  Company Number: ACO_34863_2013

PATIENT
  Age: 78 Year
  Sex: Female
  Weight: 52.6 kg

DRUGS (2)
  1. AMPYRA (DALFAMPRIDINE) TABLET, 10MG [Suspect]
     Indication: GAIT DISTURBANCE
     Route: 048
     Dates: end: 201207
  2. AVONEX [Concomitant]

REACTIONS (2)
  - Psychotic disorder [None]
  - Memory impairment [None]
